FAERS Safety Report 6001989-X (Version None)
Quarter: 2008Q4

REPORT INFORMATION
  Report Type: 
  Country: None (occurrence: None)
  Receive Date: 20081212
  Receipt Date: 20081202
  Transmission Date: 20090506
  Serious: Yes (Hospitalization)
  Sender: FDA-Public Use
  Company Number: WAES 0812USA01814

PATIENT
  Age: 42 Year
  Sex: Female
  Weight: 38.5557 kg

DRUGS (13)
  1. ISENTRESS [Suspect]
     Indication: HIV INFECTION
     Dosage: 400 MG/Q12H/PO
     Route: 048
     Dates: start: 20081106
  2. PREZISTA [Suspect]
     Indication: HIV INFECTION
     Dosage: 600 MG/Q12H/PO
     Route: 048
     Dates: start: 20081106
  3. COMPAZINE [Concomitant]
  4. DESYREL [Concomitant]
  5. INTELENCE [Suspect]
     Indication: HIV INFECTION
     Dosage: 200 MG/Q12H/PO
     Route: 048
     Dates: start: 20081106
  6. MARIONL [Concomitant]
  7. NORVIR [Concomitant]
  8. PEPCID [Concomitant]
  9. RETROVIR [Concomitant]
  10. TRUVADA [Concomitant]
  11. ZOFRAN [Concomitant]
  12. POTASSIUM CHLORIDE [Concomitant]
  13. PREDNISONE [Concomitant]

REACTIONS (7)
  - CACHEXIA [None]
  - DEHYDRATION [None]
  - DEPRESSION [None]
  - DIARRHOEA [None]
  - MALNUTRITION [None]
  - PANCYTOPENIA [None]
  - PYREXIA [None]
